FAERS Safety Report 7552208-4 (Version None)
Quarter: 2011Q2

REPORT INFORMATION
  Report Type: 
  Country: None (occurrence: None)
  Receive Date: 20110616
  Receipt Date: 20110608
  Transmission Date: 20111010
  Serious: Yes (Disabling)
  Sender: FDA-Public Use
  Company Number: US-MERCK-0804USA06375

PATIENT
  Age: 51 Year
  Sex: Female
  Weight: 48 kg

DRUGS (6)
  1. FOSAMAX [Suspect]
     Indication: BONE DENSITY DECREASED
     Route: 048
     Dates: start: 20040101, end: 20080401
  2. FOSAMAX PLUS D [Suspect]
     Indication: BONE DENSITY DECREASED
     Route: 048
  3. IRON (UNSPECIFIED) [Concomitant]
     Route: 065
     Dates: start: 20040101
  4. FOSAMAX [Suspect]
     Indication: OSTEOPOROSIS
     Route: 048
     Dates: start: 20040101, end: 20080401
  5. CELEXA [Concomitant]
     Route: 065
  6. FOSAMAX PLUS D [Suspect]
     Indication: OSTEOPOROSIS
     Route: 048

REACTIONS (10)
  - BLISTER [None]
  - FRACTURE [None]
  - TOOTH DISORDER [None]
  - TOOTH INFECTION [None]
  - ORAL DISCOMFORT [None]
  - TOOTH FRACTURE [None]
  - TOOTHACHE [None]
  - DENTAL FISTULA [None]
  - TOOTH DEVELOPMENT DISORDER [None]
  - OESOPHAGEAL ULCER [None]
